FAERS Safety Report 9027375 (Version 2)
Quarter: 2013Q1

REPORT INFORMATION
  Report Type: Spontaneous
  Country: US (occurrence: US)
  Receive Date: 20130123
  Receipt Date: 20130227
  Transmission Date: 20140127
  Serious: No
  Sender: FDA-Public Use
  Company Number: US-009507513-1301USA009667

PATIENT
  Age: 26 Year
  Sex: Female

DRUGS (1)
  1. IMPLANON [Suspect]
     Indication: CONTRACEPTION
     Dosage: 68 MG, UNK
     Route: 059
     Dates: start: 20120107

REACTIONS (4)
  - Implant site pruritus [Recovered/Resolved]
  - Implant site erythema [Recovered/Resolved]
  - Injection site mass [Recovered/Resolved]
  - Implant site discolouration [Recovered/Resolved]
